FAERS Safety Report 6770098-4 (Version None)
Quarter: 2010Q2

REPORT INFORMATION
  Report Type: 
  Country: None (occurrence: None)
  Receive Date: 20100615
  Receipt Date: 20100610
  Transmission Date: 20101027
  Serious: Yes (Hospitalization)
  Sender: FDA-Public Use
  Company Number: US-B.I. PHARMACEUTICALS,INC./RIDGEFIELD-2010-BP-05038BP

PATIENT
  Sex: Male
  Weight: 63.5 kg

DRUGS (5)
  1. SPIRIVA [Suspect]
     Dosage: 18 MCG
     Route: 055
     Dates: start: 20100101, end: 20100310
  2. TRIAMTERENE [Concomitant]
     Indication: HYPERTENSION
  3. HCTZ [Concomitant]
     Indication: HYPERTENSION
  4. DYAZIDE [Concomitant]
  5. VALIUM [Concomitant]

REACTIONS (11)
  - CONSTIPATION [None]
  - DRY MOUTH [None]
  - DRY THROAT [None]
  - HEART RATE INCREASED [None]
  - LIP SWELLING [None]
  - PNEUMONIA [None]
  - PRURITUS [None]
  - SWOLLEN TONGUE [None]
  - THROAT IRRITATION [None]
  - UPPER RESPIRATORY TRACT INFECTION [None]
  - VISION BLURRED [None]
